FAERS Safety Report 18543488 (Version 2)
Quarter: 2020Q4

REPORT INFORMATION
  Report Type: Spontaneous
  Country: FR (occurrence: FR)
  Receive Date: 20201125
  Receipt Date: 20201225
  Transmission Date: 20210114
  Serious: Yes (Other)
  Sender: FDA-Public Use
  Company Number: FR-AUROBINDO-AUR-APL-2020-058196

PATIENT
  Age: 60 Year
  Sex: Male

DRUGS (2)
  1. TAMSULOSINE ARROW LAB LP 0.4 MG PROLONGED RELEASE CAPSULES [Suspect]
     Active Substance: TAMSULOSIN HYDROCHLORIDE
     Indication: URINARY TRACT DISORDER
     Dosage: 0.4 MILLIGRAM, DAILY (1 CAPSULE DAILY)
     Route: 048
     Dates: start: 20201116, end: 20201117
  2. TAMSULOSINE ARROW LAB LP 0.4 MG PROLONGED RELEASE CAPSULES [Suspect]
     Active Substance: TAMSULOSIN HYDROCHLORIDE
     Dosage: 0.4 MG BY SEQUENCE DURING 3 TO 4 DAYS AND STOPPED DURING 3 DAYS
     Route: 048

REACTIONS (2)
  - Retrograde ejaculation [Recovered/Resolved]
  - Intentional product misuse [Unknown]

NARRATIVE: CASE EVENT DATE: 20201117
